FAERS Safety Report 8737693 (Version 2)
Quarter: 2012Q4

REPORT INFORMATION
  Report Type: 
  Country: NL (occurrence: US)
  Receive Date: 20120822
  Receipt Date: 20120905
  Transmission Date: 20130627
  Serious: No
  Sender: FDA-Public Use
  Company Number: US-009507513-2012SP031269

PATIENT

DRUGS (1)
  1. IMPLANON [Suspect]
     Indication: CONTRACEPTION
     Dosage: 1 DF, UNK
     Route: 059
     Dates: start: 20120118

REACTIONS (3)
  - Menstruation irregular [Unknown]
  - Medical device complication [Unknown]
  - Device dislocation [Unknown]
